FAERS Safety Report 6004328-3 (Version None)
Quarter: 2008Q4

REPORT INFORMATION
  Report Type: 
  Country: None (occurrence: None)
  Receive Date: 20081215
  Receipt Date: 20081215
  Transmission Date: 20090506
  Serious: Yes (Death)
  Sender: FDA-Public Use
  Company Number: None

PATIENT
  Age: 80 Year
  Sex: Male
  Weight: 76.83 kg

DRUGS (1)
  1. REOPRO [Suspect]
     Indication: ANGIOPLASTY
     Dosage: 19 MG -0.25 MG/ KG- ONCE IV BOLUS
     Route: 040
     Dates: start: 20080806, end: 20080806

REACTIONS (2)
  - DIFFUSE ALVEOLAR DAMAGE [None]
  - HAEMOPTYSIS [None]
